FAERS Safety Report 13500065 (Version 1)
Quarter: 2017Q2

REPORT INFORMATION
  Report Type: Spontaneous
  Country: US (occurrence: US)
  Receive Date: 20170501
  Receipt Date: 20170501
  Transmission Date: 20170830
  Serious: Yes (Disabling)
  Sender: FDA-Public Use
  Company Number: None

PATIENT
  Age: 42 Year
  Sex: Female
  Weight: 54.48 kg

DRUGS (7)
  1. TAIZANADINE [Concomitant]
  2. PREDNISONE. [Concomitant]
     Active Substance: PREDNISONE
  3. MIDRIN [Concomitant]
     Active Substance: ACETAMINOPHEN\DICHLORALPHENAZONE\ISOMETHEPTENE
  4. GRALISE [Concomitant]
     Active Substance: GABAPENTIN
  5. NAPROXEN. [Concomitant]
     Active Substance: NAPROXEN
  6. BOTOX [Suspect]
     Active Substance: ONABOTULINUMTOXINA
     Indication: HEADACHE
     Dates: start: 20160915, end: 20160916
  7. AMITRYPTYLINE [Concomitant]
     Active Substance: AMITRIPTYLINE

REACTIONS (10)
  - Pain [None]
  - Facial pain [None]
  - Erythema [None]
  - Pain of skin [None]
  - Eye pain [None]
  - Burning sensation [None]
  - Eye irritation [None]
  - Feeling hot [None]
  - Skin disorder [None]
  - Discomfort [None]

NARRATIVE: CASE EVENT DATE: 20160915
